FAERS Safety Report 21695607 (Version 1)
Quarter: 2022Q4

REPORT INFORMATION
  Report Type: Spontaneous
  Country: US (occurrence: None)
  Receive Date: 20221207
  Receipt Date: 20221207
  Transmission Date: 20230113
  Serious: Yes (Life-Threatening, Hospitalization)
  Sender: FDA-Public Use
  Company Number: None

PATIENT
  Age: 63 Year
  Sex: Female
  Weight: 81 kg

DRUGS (6)
  1. UMECLIDINIUM BROMIDE\VILANTEROL TRIFENATATE [Suspect]
     Active Substance: UMECLIDINIUM BROMIDE\VILANTEROL TRIFENATATE
     Indication: Asthma
     Dates: start: 20211221, end: 20221021
  2. VALSARTAN [Concomitant]
     Active Substance: VALSARTAN
  3. ALBUTEROL [Concomitant]
     Active Substance: ALBUTEROL
  4. VITAMIN D [Concomitant]
     Active Substance: VITAMIN D NOS
  5. VITAMIN B [Concomitant]
     Active Substance: VITAMIN B
  6. COLLAGEN [Concomitant]
     Active Substance: COLLAGEN

REACTIONS (5)
  - Asthma [None]
  - Heart rate irregular [None]
  - Dyspnoea [None]
  - Cardiac disorder [None]
  - Contraindicated product administered [None]

NARRATIVE: CASE EVENT DATE: 20221117
